FAERS Safety Report 14991052 (Version 1)
Quarter: 2018Q2

REPORT INFORMATION
  Report Type: Spontaneous
  Country: US (occurrence: US)
  Receive Date: 20180608
  Receipt Date: 20180608
  Transmission Date: 20180711
  Serious: No
  Sender: FDA-Public Use
  Company Number: US-VIFOR (INTERNATIONAL) INC.-VIT-2018-04584

PATIENT
  Age: 21 Year
  Sex: Female
  Weight: 53.5 kg

DRUGS (3)
  1. VENOFER [Concomitant]
     Active Substance: IRON SUCROSE
     Route: 042
  2. MIRCERA [Suspect]
     Active Substance: METHOXY POLYETHYLENE GLYCOL-EPOETIN BETA
     Indication: PRODUCT USED FOR UNKNOWN INDICATION
     Dates: start: 20180505
  3. HECTOROL [Concomitant]
     Active Substance: DOXERCALCIFEROL
     Route: 042

REACTIONS (4)
  - Hypoaesthesia oral [Unknown]
  - Dyspnoea [Unknown]
  - Drug hypersensitivity [Unknown]
  - Abdominal discomfort [Unknown]

NARRATIVE: CASE EVENT DATE: 2018
